FAERS Safety Report 5052363-4 (Version None)
Quarter: 2006Q3

REPORT INFORMATION
  Report Type: 
  Country: None (occurrence: None)
  Receive Date: 20060717
  Receipt Date: 20060624
  Transmission Date: 20061208
  Serious: Yes (Life-Threatening)
  Sender: FDA-Public Use
  Company Number: 2006AP02920

PATIENT
  Age: 59 Year
  Sex: Female
  Weight: 61 kg

DRUGS (5)
  1. ARIMIDEX [Suspect]
     Indication: BREAST CANCER
     Route: 048
     Dates: start: 20041013, end: 20060609
  2. FLUOROURACIL [Concomitant]
     Dosage: GIVEN AS 6 CYCLES
     Dates: start: 19930617, end: 19930930
  3. EPIRUBICIN [Concomitant]
     Dosage: GIVEN AS 6 CYCLES
     Dates: start: 19930617, end: 19930930
  4. CYCLOPHOSPHAMIDE [Concomitant]
     Dosage: GIVEN AS 6 CYCLES
     Dates: start: 19930617, end: 19930930
  5. RADIOTHERAPY [Concomitant]
     Dosage: 500CGY/25 FRACTIONS/33 ELAPSED DAYS

REACTIONS (2)
  - CARDIAC ARREST [None]
  - VENTRICULAR FIBRILLATION [None]
